FAERS Safety Report 17401170 (Version 2)
Quarter: 2022Q1

REPORT INFORMATION
  Report Type: Spontaneous
  Country: BR (occurrence: BR)
  Receive Date: 20200211
  Receipt Date: 20220331
  Transmission Date: 20220423
  Serious: Yes (Other)
  Sender: FDA-Public Use
  Company Number: BR-TEVA-2020-BR-1183024

PATIENT
  Age: 54 Year
  Sex: Female

DRUGS (9)
  1. METHOTREXATE [Interacting]
     Active Substance: METHOTREXATE
     Indication: Pustular psoriasis
     Route: 058
  2. ASPIRIN [Suspect]
     Active Substance: ASPIRIN
     Route: 065
  3. COAL TAR [Suspect]
     Active Substance: COAL TAR
     Indication: Pustular psoriasis
     Route: 061
  4. COLCHICINE [Suspect]
     Active Substance: COLCHICINE
     Indication: Pustular psoriasis
     Route: 065
  5. DAPSONE [Suspect]
     Active Substance: DAPSONE
     Indication: Pustular psoriasis
     Route: 065
  6. FUROSEMIDE [Concomitant]
     Active Substance: FUROSEMIDE
     Route: 065
  7. PROPRANOLOL [Concomitant]
     Active Substance: PROPRANOLOL HYDROCHLORIDE
     Route: 065
  8. METFORMIN [Concomitant]
     Active Substance: METFORMIN HYDROCHLORIDE
     Route: 065
  9. FOLIC ACID [Concomitant]
     Active Substance: FOLIC ACID
     Indication: Supplementation therapy
     Route: 048

REACTIONS (3)
  - Epidermal necrosis [Recovered/Resolved]
  - Drug interaction [Recovered/Resolved]
  - Treatment failure [Unknown]
